FAERS Safety Report 12455884 (Version 1)
Quarter: 2016Q2

REPORT INFORMATION
  Report Type: Spontaneous
  Country: US (occurrence: US)
  Receive Date: 20160610
  Receipt Date: 20160610
  Transmission Date: 20160815
  Serious: No
  Sender: FDA-Public Use
  Company Number: GXBR2015US002782

PATIENT

DRUGS (1)
  1. TRIAMTERENE/HCTZ CAPSULES USP [Suspect]
     Active Substance: HYDROCHLOROTHIAZIDE\TRIAMTERENE
     Indication: PRODUCT USED FOR UNKNOWN INDICATION
     Dosage: 37.5MG TRIAMTERENE AND 25MG HYRDROCHLOROTHIAZIDE, UNK
     Route: 048

REACTIONS (1)
  - Expired product administered [Unknown]
